FAERS Safety Report 5742966-3 (Version None)
Quarter: 2008Q2

REPORT INFORMATION
  Report Type: 
  Country: None (occurrence: None)
  Receive Date: 20080519
  Receipt Date: 20080515
  Transmission Date: 20081010
  Serious: Yes (Life-Threatening, Hospitalization, Disabling)
  Sender: FDA-Public Use
  Company Number: PHHO2006DE09229

PATIENT
  Age: 80 Year
  Sex: Female
  Weight: 71 kg

DRUGS (4)
  1. FEMARA [Suspect]
     Indication: BREAST CANCER
     Dosage: 2.5 MG
     Route: 048
     Dates: start: 20040615, end: 20060414
  2. FEMARA [Suspect]
     Dosage: NO TREATMENT
     Dates: start: 20060415, end: 20060420
  3. FEMARA [Suspect]
     Dosage: 2.5 MG, QD
     Route: 048
     Dates: start: 20060421, end: 20060606
  4. ZOLEDRONIC ACID [Suspect]
     Dosage: UNK, UNK
     Route: 042
     Dates: start: 20040615

REACTIONS (4)
  - DYSPNOEA [None]
  - INCREASED BRONCHIAL SECRETION [None]
  - MECHANICAL VENTILATION [None]
  - RESPIRATORY DISTRESS [None]
